FAERS Safety Report 10616658 (Version 1)
Quarter: 2014Q4

REPORT INFORMATION
  Report Type: Spontaneous
  Country: US (occurrence: None)
  Receive Date: 20141126
  Receipt Date: 20141126
  Transmission Date: 20150529
  Serious: Yes (Disabling)
  Sender: FDA-Public Use
  Company Number: None

PATIENT
  Age: 49 Year
  Sex: Female
  Weight: 51.71 kg

DRUGS (1)
  1. DILTIAZEM HYDROCHLORIDE EXTENDED RELEASE [Suspect]
     Active Substance: DILTIAZEM HYDROCHLORIDE
     Indication: HYPERTENSION
     Dosage: 1 CAPSULE Q 24 HR
     Route: 048
     Dates: end: 20141111

REACTIONS (7)
  - Myopathy [None]
  - Gait disturbance [None]
  - Pain in extremity [None]
  - Dysstasia [None]
  - Exercise tolerance decreased [None]
  - Activities of daily living impaired [None]
  - Fatigue [None]
